FAERS Safety Report 4845837-X (Version None)
Quarter: 2005Q4

REPORT INFORMATION
  Report Type: 
  Country: None (occurrence: None)
  Receive Date: 20051206
  Receipt Date: 20051129
  Transmission Date: 20060501
  Serious: Yes (Other)
  Sender: FDA-Public Use
  Company Number: US-GLAXOSMITHKLINE-A0584545A

PATIENT
  Age: 38 Year
  Sex: Female

DRUGS (2)
  1. COMBIVIR [Suspect]
     Dosage: 900MG PER DAY
     Route: 048
     Dates: start: 20040401
  2. VIRACEPT [Concomitant]
     Dosage: 2500MG PER DAY
     Route: 048
     Dates: start: 20040401

REACTIONS (2)
  - LABORATORY TEST ABNORMAL [None]
  - TRISOMY 21 [None]
